FAERS Safety Report 12679214 (Version 1)
Quarter: 2016Q3

REPORT INFORMATION
  Report Type: Spontaneous
  Country: MY (occurrence: MY)
  Receive Date: 20160824
  Receipt Date: 20160824
  Transmission Date: 20161109
  Serious: Yes (Other)
  Sender: FDA-Public Use
  Company Number: MY-RECKITT BENCKISER HEALTHCARE INT LIMITED-RB-89635-2016

PATIENT
  Age: 14 Day

DRUGS (1)
  1. UNSPECIFIED DETTOL [Suspect]
     Active Substance: CHLOROXYLENOL\TRICLOSAN
     Indication: PRODUCT USED FOR UNKNOWN INDICATION
     Dosage: UNK
     Route: 048

REACTIONS (2)
  - Intentional product misuse [Unknown]
  - No adverse event [Unknown]
